FAERS Safety Report 8771285 (Version 1)
Quarter: 2012Q4

REPORT INFORMATION
  Report Type: 
  Country: FR (occurrence: FR)
  Receive Date: 20120905
  Receipt Date: 20120905
  Transmission Date: 20130627
  Serious: Yes (Hospitalization)
  Sender: FDA-Public Use
  Company Number: FR-BRISTOL-MYERS SQUIBB COMPANY-16908543

PATIENT
  Age: 64 Year
  Sex: Female

DRUGS (19)
  1. COAPROVEL TABS [Suspect]
     Route: 048
     Dates: end: 20120701
  2. CELIPROLOL [Concomitant]
  3. FORADIL [Concomitant]
  4. PULMICORT [Concomitant]
  5. FENOFIBRATE [Concomitant]
  6. KALEORID [Concomitant]
  7. SIBELIUM [Concomitant]
  8. PIRACETAM [Concomitant]
  9. NOCERTONE [Concomitant]
  10. URBANYL [Concomitant]
  11. OROCAL D3 [Concomitant]
  12. CLARITYNE [Concomitant]
  13. INEXIUM [Concomitant]
  14. TRIMETAZIDINE [Concomitant]
  15. NAFTIDROFURYL [Concomitant]
  16. PARACETAMOL [Concomitant]
  17. ALLERGODIL [Concomitant]
  18. TARDYFERON [Concomitant]
  19. SMECTA [Concomitant]

REACTIONS (3)
  - Hyponatraemia [Recovered/Resolved]
  - Asthma [Recovered/Resolved]
  - Lung infection [Recovered/Resolved]
